FAERS Safety Report 20319145 (Version 1)
Quarter: 2022Q1

REPORT INFORMATION
  Report Type: Spontaneous
  Country: US (occurrence: None)
  Receive Date: 20220110
  Receipt Date: 20220110
  Transmission Date: 20220424
  Serious: Yes (Other)
  Sender: FDA-Public Use
  Company Number: None

PATIENT
  Age: 26 Year
  Sex: Female
  Weight: 82.8 kg

DRUGS (5)
  1. ZOLOFT [Suspect]
     Active Substance: SERTRALINE HYDROCHLORIDE
     Indication: Depression
     Dosage: FREQUENCY : DAILY;?
     Route: 048
     Dates: start: 20211104
  2. VENTOLIN [Concomitant]
     Active Substance: ALBUTEROL SULFATE
  3. METOPROLOL TARTRATE [Concomitant]
     Active Substance: METOPROLOL TARTRATE
  4. PROGESTERONE [Concomitant]
     Active Substance: PROGESTERONE
     Dates: start: 20211214
  5. VITAMINS [Concomitant]
     Active Substance: VITAMINS

REACTIONS (3)
  - Haemorrhagic cyst [None]
  - Pregnancy [None]
  - Maternal exposure during pregnancy [None]

NARRATIVE: CASE EVENT DATE: 20211227
